FAERS Safety Report 10045240 (Version 2)
Quarter: 2014Q2

REPORT INFORMATION
  Report Type: Spontaneous
  Country: IT (occurrence: IT)
  Receive Date: 20140328
  Receipt Date: 20140417
  Transmission Date: 20141212
  Serious: Yes (Other)
  Sender: FDA-Public Use
  Company Number: IT-WATSON-2014-05617

PATIENT
  Age: 66 Year
  Sex: Male

DRUGS (5)
  1. TAMSULOSIN (UNKNOWN) [Suspect]
     Indication: BENIGN PROSTATIC HYPERPLASIA
     Dosage: 1 DF, DAILY
     Route: 048
     Dates: start: 20140221, end: 20140222
  2. LEVOFLOXACIN (UNKNOWN) [Suspect]
     Indication: URINARY TRACT INFECTION
     Dosage: 1 DF, DAILY
     Route: 048
     Dates: start: 20140221, end: 20140222
  3. DELTACORTENE [Suspect]
     Indication: URINARY TRACT INFECTION
     Dosage: 1 DF, DAILY
     Route: 048
  4. SEREUPIN [Concomitant]
     Indication: PRODUCT USED FOR UNKNOWN INDICATION
     Dosage: 10 MG, UNK
     Route: 048
  5. CARDIOASPIRIN [Concomitant]
     Indication: PRODUCT USED FOR UNKNOWN INDICATION
     Dosage: UNK
     Route: 048

REACTIONS (1)
  - Syncope [Recovering/Resolving]
